FAERS Safety Report 16167520 (Version 1)
Quarter: 2019Q2

REPORT INFORMATION
  Report Type: Spontaneous
  Country: NL (occurrence: NL)
  Receive Date: 20190408
  Receipt Date: 20190408
  Transmission Date: 20190711
  Serious: Yes (Other)
  Sender: FDA-Public Use
  Company Number: NL-TEVA-2019-NL-1033938

PATIENT
  Sex: Female
  Weight: 58 kg

DRUGS (6)
  1. MOMETASON NEUSSPRAY 50UG/DO [Concomitant]
     Active Substance: MOMETASONE
     Dosage: 2 DOSAGE FORMS DAILY; 2X DAILY 1 DOSE
  2. HYDROKININE DRAGEE 100MG [Concomitant]
     Dosage: IF NECESSARY
  3. VERAPAMIL [Suspect]
     Active Substance: VERAPAMIL HYDROCHLORIDE
     Indication: ATRIAL FIBRILLATION
     Dosage: 120 MILLIGRAM DAILY; 1X PER DAY 1 PIECE
     Dates: start: 20180110, end: 20180329
  4. ENALAPRIL/HYDROCHLOORTHIAZIDE TABLET 20/12,5MG [Concomitant]
     Dosage: 1 DOSAGE FORMS DAILY; 1DD1
  5. DABIGATRAN ETEXILAAT CAPSULE 110MG [Concomitant]
     Dosage: 220 MILLIGRAM DAILY; 2DD1
  6. TERBUTALINE INHALATIEPDR 0,25MG/DO [Concomitant]
     Dosage: 1 DOSAGE FORMS DAILY; 1X DAILY 1 DOSE

REACTIONS (1)
  - Hepatitis [Recovered/Resolved]
